FAERS Safety Report 8176680-4 (Version None)
Quarter: 2012Q1

REPORT INFORMATION
  Report Type: 
  Country: None (occurrence: None)
  Receive Date: 20120301
  Receipt Date: 20120221
  Transmission Date: 20120608
  Serious: Yes (Hospitalization)
  Sender: FDA-Public Use
  Company Number: US-JNJFOC-20120211211

PATIENT
  Sex: Female
  Weight: 68.04 kg

DRUGS (4)
  1. LUPRON DEPOT [Suspect]
     Indication: ENDOMETRIOSIS
     Route: 065
     Dates: start: 20110101
  2. AN UNKNOWN MEDICATION [Suspect]
     Indication: ENDOMETRIOSIS
     Route: 065
  3. DURAGESIC-100 [Suspect]
     Indication: CYSTITIS INTERSTITIAL
     Dosage: 12.5 UG/HR AND 75UG/HR
     Route: 062
  4. FENTANYL-100 [Suspect]
     Indication: CYSTITIS INTERSTITIAL
     Dosage: 12.5 UG/HR AND 75UG/HR
     Route: 062

REACTIONS (5)
  - DRUG INEFFECTIVE [None]
  - ENDOMETRIOSIS [None]
  - APPLICATION SITE PERSPIRATION [None]
  - WRONG TECHNIQUE IN DRUG USAGE PROCESS [None]
  - PRODUCT QUALITY ISSUE [None]
